FAERS Safety Report 18957500 (Version 1)
Quarter: 2021Q1

REPORT INFORMATION
  Report Type: Spontaneous
  Country: US (occurrence: US)
  Receive Date: 20210302
  Receipt Date: 20210302
  Transmission Date: 20210420
  Serious: Yes (Other)
  Sender: FDA-Public Use
  Company Number: US-ALLERGAN-2030596US

PATIENT
  Sex: Male

DRUGS (1)
  1. NORCO [Suspect]
     Active Substance: ACETAMINOPHEN\HYDROCODONE BITARTRATE
     Indication: PRODUCT USED FOR UNKNOWN INDICATION
     Dosage: UNK
     Route: 065

REACTIONS (9)
  - Muscle spasms [Unknown]
  - Sneezing [Unknown]
  - Cognitive disorder [Unknown]
  - Lacrimation increased [Unknown]
  - Headache [Unknown]
  - Constipation [Unknown]
  - Dependence [Unknown]
  - Memory impairment [Unknown]
  - Abdominal pain upper [Unknown]
